FAERS Safety Report 16395249 (Version 3)
Quarter: 2020Q1

REPORT INFORMATION
  Report Type: Spontaneous
  Country: GB (occurrence: GB)
  Receive Date: 20190605
  Receipt Date: 20200212
  Transmission Date: 20200409
  Serious: Yes (Other)
  Sender: FDA-Public Use
  Company Number: GB-AMGEN-GBRSP2019085922

PATIENT
  Age: 59 Year
  Sex: Male

DRUGS (5)
  1. PARACETAMOL [Concomitant]
     Active Substance: ACETAMINOPHEN
     Dosage: UNK UNK, AS NECESSARY
  2. METHOTREXATE. [Concomitant]
     Active Substance: METHOTREXATE
     Dosage: 10 MILLIGRAM, QWK
     Route: 048
  3. AMGEVITA [Suspect]
     Active Substance: ADALIMUMAB
     Indication: RHEUMATOID ARTHRITIS
     Dosage: 40 MILLIGRAM
     Route: 058
     Dates: start: 20190414, end: 20190429
  4. FOLIC ACID. [Concomitant]
     Active Substance: FOLIC ACID
     Dosage: 10 MILLIGRAM, QWK
     Route: 048
  5. IRBESARTAN. [Concomitant]
     Active Substance: IRBESARTAN
     Indication: HYPERTENSION

REACTIONS (6)
  - Diplopia [Recovered/Resolved]
  - Paraesthesia [Recovered/Resolved]
  - Migraine [Recovered/Resolved]
  - Vision blurred [Recovered/Resolved]
  - Product substitution issue [Unknown]
  - Hypertension [Recovered/Resolved]

NARRATIVE: CASE EVENT DATE: 20190415
